FAERS Safety Report 18760738 (Version 2)
Quarter: 2021Q2

REPORT INFORMATION
  Report Type: Spontaneous
  Country: US (occurrence: US)
  Receive Date: 20210119
  Receipt Date: 20210628
  Transmission Date: 20210717
  Serious: Yes (Other)
  Sender: FDA-Public Use
  Company Number: US-PFIZER INC-2021027027

PATIENT
  Age: 73 Year
  Sex: Female

DRUGS (3)
  1. IBRANCE [Suspect]
     Active Substance: PALBOCICLIB
     Indication: BREAST CANCER
     Dosage: 75 MG, CYCLIC (TABLET ONCE A DAY BY MOUTH, ON FOR 21 DAYS AND OFF FOR 7 DAYS)
     Route: 048
  2. IBRANCE [Suspect]
     Active Substance: PALBOCICLIB
     Indication: BREAST CANCER RECURRENT
     Dosage: 125 MG, CYCLIC (ONCE A DAY BY MOUTH FOR 21 DAYS ON AND THEN 7 DAYS OFF)
     Dates: start: 202003
  3. IBRANCE [Suspect]
     Active Substance: PALBOCICLIB
     Dosage: 100 MG
     Dates: start: 2020

REACTIONS (16)
  - Arthralgia [Unknown]
  - Hair texture abnormal [Unknown]
  - Anxiety [Unknown]
  - Peripheral swelling [Unknown]
  - Stomatitis [Unknown]
  - Pruritus [Unknown]
  - Skin disorder [Unknown]
  - Alopecia [Unknown]
  - Multiple chemical sensitivity [Unknown]
  - Orthopnoea [Unknown]
  - Memory impairment [Unknown]
  - Swollen tongue [Unknown]
  - Eating disorder [Unknown]
  - Cognitive disorder [Unknown]
  - Fatigue [Unknown]
  - Weight increased [Unknown]
